FAERS Safety Report 14544811 (Version 5)
Quarter: 2019Q4

REPORT INFORMATION
  Report Type: Spontaneous
  Country: GB (occurrence: GB)
  Receive Date: 20180217
  Receipt Date: 20191211
  Transmission Date: 20200122
  Serious: Yes (Other)
  Sender: FDA-Public Use
  Company Number: GB-AUROBINDO-AUR-APL-2018-007844

PATIENT
  Age: 32 Year
  Sex: Female

DRUGS (13)
  1. OLANZAPINE. [Suspect]
     Active Substance: OLANZAPINE
     Indication: HALLUCINATION, AUDITORY
     Dosage: DOSAGE FORM: UNKNOWN
     Route: 065
  2. RISPERDAL [Suspect]
     Active Substance: RISPERIDONE
     Indication: HALLUCINATION, AUDITORY
     Dosage: DOSAGE FORM: UNSPECIFIED
     Route: 016
  3. CLOZARIL [Suspect]
     Active Substance: CLOZAPINE
     Indication: SCHIZOAFFECTIVE DISORDER
     Dosage: UNK
     Route: 048
     Dates: start: 2006, end: 20171205
  4. CLOZARIL [Suspect]
     Active Substance: CLOZAPINE
     Indication: SCHIZOPHRENIA
     Dosage: UNK
     Route: 048
     Dates: start: 20050215
  5. RISPERIDONE. [Suspect]
     Active Substance: RISPERIDONE
     Indication: HALLUCINATION, AUDITORY
     Dosage: UNK
     Route: 065
  6. HALDOL [Suspect]
     Active Substance: HALOPERIDOL
     Indication: HALLUCINATION, AUDITORY
     Dosage: UNK, DOSAGE FORM: UNSPECIFIED
     Route: 065
     Dates: start: 2019
  7. CLOZARIL [Suspect]
     Active Substance: CLOZAPINE
     Dosage: UNK
     Route: 048
     Dates: start: 20180205, end: 2019
  8. AMISULPRIDE [Suspect]
     Active Substance: AMISULPRIDE
     Indication: HALLUCINATION, AUDITORY
     Dosage: DOSAGE FORM: UNKNOWN
     Route: 065
  9. QUETIAPINE. [Suspect]
     Active Substance: QUETIAPINE
     Indication: PRODUCT USED FOR UNKNOWN INDICATION
     Dosage: UNK
     Route: 065
  10. CLOZARIL [Suspect]
     Active Substance: CLOZAPINE
     Dosage: UNK
     Route: 048
     Dates: start: 2019
  11. ARIPIPRAZOLE. [Suspect]
     Active Substance: ARIPIPRAZOLE
     Indication: PRODUCT USED FOR UNKNOWN INDICATION
     Dosage: UNK
     Route: 065
     Dates: start: 2019
  12. ZUCLOPENTHIXOL [Suspect]
     Active Substance: ZUCLOPENTHIXOL
     Indication: HALLUCINATION, AUDITORY
     Dosage: DOSAGE FORM: UNKNOWN
     Route: 065
     Dates: start: 2006, end: 20171205
  13. CLOZARIL [Suspect]
     Active Substance: CLOZAPINE
     Dosage: UNK
     Route: 048
     Dates: start: 201909

REACTIONS (8)
  - Suicidal ideation [Unknown]
  - Leukopenia [Recovered/Resolved]
  - Drug ineffective [Unknown]
  - Eosinophil count decreased [Recovered/Resolved]
  - Schizophrenia [Not Recovered/Not Resolved]
  - Refusal of examination [Unknown]
  - Malaise [Unknown]
  - Neutropenia [Recovered/Resolved]

NARRATIVE: CASE EVENT DATE: 201711
